FAERS Safety Report 8109484-9 (Version None)
Quarter: 2012Q1

REPORT INFORMATION
  Report Type: 
  Country: None (occurrence: None)
  Receive Date: 20120202
  Receipt Date: 20120123
  Transmission Date: 20120608
  Serious: Yes (Hospitalization, Other)
  Sender: FDA-Public Use
  Company Number: BR-ABBOTT-11P-020-0882512-00

PATIENT
  Sex: Male
  Weight: 53 kg

DRUGS (7)
  1. HUMIRA [Suspect]
     Indication: JUVENILE ARTHRITIS
     Route: 058
     Dates: start: 20100707
  2. PREDNISONE TAB [Concomitant]
     Indication: RHEUMATOID ARTHRITIS
     Route: 048
  3. HUMIRA [Suspect]
     Route: 058
     Dates: start: 20101026, end: 20111103
  4. SULFASALAZINE [Concomitant]
  5. METHOTREXATE [Concomitant]
  6. SULFASALAZINE [Concomitant]
     Indication: RHEUMATOID ARTHRITIS
  7. METHOTREXATE [Concomitant]
     Indication: RHEUMATOID ARTHRITIS

REACTIONS (7)
  - DECREASED APPETITE [None]
  - RHEUMATOID ARTHRITIS [None]
  - PYREXIA [None]
  - WEIGHT DECREASED [None]
  - TUBERCULOSIS [None]
  - PLEURAL EFFUSION [None]
  - PNEUMONIA [None]
